FAERS Safety Report 24710173 (Version 1)
Quarter: 2024Q4

REPORT INFORMATION
  Report Type: Spontaneous
  Country: US (occurrence: US)
  Receive Date: 20241209
  Receipt Date: 20241209
  Transmission Date: 20250115
  Serious: No
  Sender: GLENMARK
  Company Number: US-GLENMARK PHARMACEUTICALS-2024GMK093665

PATIENT

DRUGS (3)
  1. OMEPRAZOLE [Suspect]
     Active Substance: OMEPRAZOLE
     Indication: Product used for unknown indication
     Dosage: 2 DOSAGE FORM, QD
     Route: 065
  2. ESCITALOPRAM [Concomitant]
     Active Substance: ESCITALOPRAM OXALATE
     Indication: Product used for unknown indication
     Dosage: UNK, QD, AT NIGHT
     Route: 065
  3. LORETA [Concomitant]
     Indication: Product used for unknown indication
     Dosage: UNK
     Route: 065

REACTIONS (1)
  - Product use issue [Unknown]
